FAERS Safety Report 4662284-4 (Version None)
Quarter: 2005Q2

REPORT INFORMATION
  Report Type: 
  Country: None (occurrence: None)
  Receive Date: 20050512
  Receipt Date: 20050427
  Transmission Date: 20051028
  Serious: Yes (Hospitalization)
  Sender: FDA-Public Use
  Company Number: US_0504116585

PATIENT
  Age: 65 Year
  Sex: Male

DRUGS (12)
  1. GEMCITABINE HYDROCHLORIDE-IV (GEMCITABINE) [Suspect]
     Indication: PANCREATIC CARCINOMA
     Dosage: 1840 MG
     Dates: start: 20030710
  2. INFLIXIMAB [Concomitant]
  3. PLCEBO LYOPHILIZED POWDER [Concomitant]
  4. METOCLOPRAMIDE [Concomitant]
  5. OXYCODONE HCL [Concomitant]
  6. MORPHINE SULFATE [Concomitant]
  7. TRIAZOLAM [Concomitant]
  8. LACTULOSE [Concomitant]
  9. ACETAMINOPHEN [Concomitant]
  10. ONDANSETRON [Concomitant]
  11. DEXAMETHASONE [Concomitant]
  12. METFORMIN/ROSIGLITAZONE [Concomitant]

REACTIONS (3)
  - ABDOMINAL PAIN [None]
  - NAUSEA [None]
  - VOMITING [None]
